FAERS Safety Report 24966760 (Version 1)
Quarter: 2025Q1

REPORT INFORMATION
  Report Type: Spontaneous
  Country: US (occurrence: US)
  Receive Date: 20250213
  Receipt Date: 20250213
  Transmission Date: 20250409
  Serious: No
  Sender: ABBVIE
  Company Number: US-ABBVIE-6127632

PATIENT
  Sex: Female

DRUGS (1)
  1. RESTASIS [Suspect]
     Active Substance: CYCLOSPORINE
     Indication: Endocrine ophthalmopathy
     Route: 047
     Dates: end: 2025

REACTIONS (2)
  - Lacrimation increased [Unknown]
  - Off label use [Unknown]
